FAERS Safety Report 9294320 (Version 2)
Quarter: 2014Q1

REPORT INFORMATION
  Report Type: Report from Study
  Country: ZA (occurrence: ZA)
  Receive Date: 20130517
  Receipt Date: 20140312
  Transmission Date: 20141002
  Serious: Yes (Death, Hospitalization)
  Sender: FDA-Public Use
  Company Number: ZA-ROCHE-1224365

PATIENT
  Age: 75 Year
  Sex: Female

DRUGS (3)
  1. MIRCERA [Suspect]
     Indication: NEPHROGENIC ANAEMIA
     Route: 058
     Dates: start: 201004
  2. MIRCERA [Suspect]
     Dosage: LAST DOSE HE HAD TAKEN ON JUN/2014
     Route: 058
     Dates: start: 201106
  3. VENOFER [Concomitant]
     Route: 042

REACTIONS (3)
  - Fluid overload [Not Recovered/Not Resolved]
  - Pleural disorder [Not Recovered/Not Resolved]
  - Nephropathy [Fatal]
